FAERS Safety Report 11102220 (Version 1)
Quarter: 2015Q2

REPORT INFORMATION
  Report Type: Spontaneous
  Country: US (occurrence: None)
  Receive Date: 20150507
  Receipt Date: 20150507
  Transmission Date: 20150821
  Serious: Yes (Other)
  Sender: FDA-Public Use
  Company Number: CIO15026422

PATIENT
  Age: 25 Year
  Sex: Male

DRUGS (3)
  1. CREST PRO-HEALTH (STANNOUS FLUORIDE) [Suspect]
     Active Substance: STANNOUS FLUORIDE
     Dosage: 1 APPLIC, UNKNOWN FREQUENCY, INTRAORAL
     Dates: end: 2000
  2. CREST 3D WHITE [Suspect]
     Active Substance: SODIUM FLUORIDE
     Dosage: 1 APPLIC, UNKNOWN FREQUENCY, INTRAORAL
     Dates: end: 2000
  3. CREST PRO-HEALTH ADVANCED [Suspect]
     Active Substance: STANNOUS FLUORIDE
     Dosage: 1 APPLIC, UNKNOWN FREQUENCY USED AT THE GYM AND AT WORK, INTRAORAL

REACTIONS (10)
  - Tooth erosion [None]
  - Bacterial infection [None]
  - Gingival pain [None]
  - Foreign body [None]
  - Tooth infection [None]
  - Tooth loss [None]
  - Gingivitis [None]
  - Mouth swelling [None]
  - Sensitivity of teeth [None]
  - Noninfective gingivitis [None]
